FAERS Safety Report 10264556 (Version 1)
Quarter: 2014Q2

REPORT INFORMATION
  Report Type: Spontaneous
  Country: US (occurrence: US)
  Receive Date: 20140627
  Receipt Date: 20140627
  Transmission Date: 20141212
  Serious: No
  Sender: FDA-Public Use
  Company Number: US-BRACCO-010857

PATIENT
  Age: 32 Year
  Sex: Male

DRUGS (2)
  1. MULTIHANCE [Suspect]
     Indication: NUCLEAR MAGNETIC RESONANCE IMAGING
     Route: 042
     Dates: start: 20140408, end: 20140408
  2. ALLERGY MEDICATION [Concomitant]
     Indication: SEASONAL ALLERGY

REACTIONS (3)
  - Sneezing [Recovered/Resolved]
  - Nasal congestion [Recovered/Resolved]
  - Stomatitis [Recovered/Resolved]
